FAERS Safety Report 21090511 (Version 1)
Quarter: 2022Q3

REPORT INFORMATION
  Report Type: Report from Study
  Country: US (occurrence: US)
  Receive Date: 20220715
  Receipt Date: 20220715
  Transmission Date: 20221026
  Serious: Yes (Other)
  Sender: FDA-Public Use
  Company Number: US-GILEAD-2022-0589623

PATIENT

DRUGS (8)
  1. BICTEGRAVIR\EMTRICITABINE\TENOFOVIR ALAFENAMIDE [Suspect]
     Active Substance: BICTEGRAVIR\EMTRICITABINE\TENOFOVIR ALAFENAMIDE
     Indication: HIV infection
     Route: 065
  2. EMTRICITABINE\TENOFOVIR [Suspect]
     Active Substance: EMTRICITABINE\TENOFOVIR
     Indication: HIV infection
     Route: 065
  3. ABACAVIR [Suspect]
     Active Substance: ABACAVIR
     Indication: HIV infection
     Route: 065
  4. ISENTRESS [Suspect]
     Active Substance: RALTEGRAVIR POTASSIUM
     Indication: HIV infection
     Route: 065
  5. TIVICAY PD [Suspect]
     Active Substance: DOLUTEGRAVIR SODIUM
     Indication: HIV infection
     Route: 065
  6. PREZCOBIX [Suspect]
     Active Substance: COBICISTAT\DARUNAVIR ETHANOLATE
     Indication: HIV infection
     Route: 065
  7. DOLUTEGRAVIR [Suspect]
     Active Substance: DOLUTEGRAVIR
     Indication: HIV infection
     Route: 065
  8. TRIUMEQ [Suspect]
     Active Substance: ABACAVIR SULFATE\DOLUTEGRAVIR SODIUM\LAMIVUDINE
     Indication: HIV infection
     Route: 065

REACTIONS (27)
  - Seizure [Unknown]
  - Irritability [Unknown]
  - Affective disorder [Unknown]
  - Depression [Unknown]
  - Vomiting [Unknown]
  - Thinking abnormal [Unknown]
  - Dysuria [Unknown]
  - Renal disorder [Unknown]
  - Dyspnoea [Unknown]
  - Confusional state [Unknown]
  - Dysphemia [Unknown]
  - Decreased appetite [Unknown]
  - Bedridden [Unknown]
  - Hernia [Unknown]
  - Varicocele [Unknown]
  - Cardiac disorder [Unknown]
  - Muscle spasms [Unknown]
  - Myalgia [Unknown]
  - Arthralgia [Unknown]
  - Haematemesis [Unknown]
  - Diarrhoea haemorrhagic [Unknown]
  - Mood swings [Unknown]
  - Suicidal ideation [Unknown]
  - Hallucination, auditory [Unknown]
  - Dyspepsia [Unknown]
  - Dysbiosis [Unknown]
  - Weight decreased [Unknown]
